FAERS Safety Report 4731886-9 (Version None)
Quarter: 2005Q3

REPORT INFORMATION
  Report Type: 
  Country: None (occurrence: None)
  Receive Date: 20050725
  Receipt Date: 20041116
  Transmission Date: 20060218
  Serious: Yes (Disabling)
  Sender: FDA-Public Use
  Company Number: WAES 0411USA02854

PATIENT
  Age: 66 Year
  Sex: Female
  Weight: 95.709 kg

DRUGS (5)
  1. VIOXX [Suspect]
     Indication: ARTHRITIS
     Dosage: 25 MG/DAILY/PO
     Route: 048
     Dates: start: 20020522, end: 20021211
  2. VIOXX [Suspect]
     Indication: ARTHRITIS
     Dosage: 25 MG/DAILY/PO
     Route: 048
     Dates: start: 20030408, end: 20041022
  3. AMBIEN [Concomitant]
  4. LEVOTHROID [Concomitant]
  5. NIASPAN [Concomitant]

REACTIONS (4)
  - CHEST PAIN [None]
  - DIASTOLIC DYSFUNCTION [None]
  - HYPERTENSION [None]
  - SPINAL OSTEOARTHRITIS [None]
